FAERS Safety Report 6317293-6 (Version None)
Quarter: 2009Q3

REPORT INFORMATION
  Report Type: 
  Country: None (occurrence: None)
  Receive Date: 20090821
  Receipt Date: 20090817
  Transmission Date: 20100115
  Serious: Yes (Hospitalization)
  Sender: FDA-Public Use
  Company Number: US-BIOGENIDEC-2009BI014126

PATIENT
  Age: 55 Year
  Sex: Male
  Weight: 126 kg

DRUGS (2)
  1. TYSABRI [Suspect]
     Indication: MULTIPLE SCLEROSIS
     Route: 042
     Dates: start: 20081006, end: 20081006
  2. TYSABRI [Suspect]
     Route: 042
     Dates: start: 20090408

REACTIONS (7)
  - CONTUSION [None]
  - DIZZINESS [None]
  - POLLAKIURIA [None]
  - POOR VENOUS ACCESS [None]
  - PRESYNCOPE [None]
  - RASH [None]
  - SKIN DISCOLOURATION [None]
